FAERS Safety Report 15190088 (Version 1)
Quarter: 2018Q3

REPORT INFORMATION
  Report Type: Spontaneous
  Country: US (occurrence: US)
  Receive Date: 20180724
  Receipt Date: 20180724
  Transmission Date: 20181010
  Serious: No
  Sender: FDA-Public Use
  Company Number: US-PFIZER INC-2018295847

PATIENT
  Age: 53 Year
  Sex: Female

DRUGS (3)
  1. DIFLUCAN [Interacting]
     Active Substance: FLUCONAZOLE
     Dosage: UNK
  2. NYSTATIN. [Interacting]
     Active Substance: NYSTATIN
     Dosage: UNK
  3. XELJANZ [Suspect]
     Active Substance: TOFACITINIB CITRATE
     Indication: RHEUMATOID ARTHRITIS
     Dosage: 5 MG, 1X/DAY
     Route: 048
     Dates: start: 20180719

REACTIONS (2)
  - Drug interaction [Unknown]
  - Product use issue [Unknown]

NARRATIVE: CASE EVENT DATE: 20180719
